FAERS Safety Report 8839536 (Version 1)
Quarter: 2012Q4

REPORT INFORMATION
  Report Type: Spontaneous
  Country: US (occurrence: None)
  Receive Date: 20121012
  Receipt Date: 20121012
  Transmission Date: 20130627
  Serious: Yes (Hospitalization)
  Sender: FDA-Public Use
  Company Number: None

PATIENT
  Sex: Female
  Weight: 54.5 kg

DRUGS (2)
  1. OFATUMUMAB [Suspect]
     Indication: CHRONIC LYMPHOCYTIC LEUKEMIA
     Dosage: 2000mg biweekly IV
     Dates: start: 201206, end: 201209
  2. CAMPATH [Suspect]
     Dosage: mg30 3 x weekly SubQ
     Route: 058
     Dates: start: 201206, end: 201209

REACTIONS (5)
  - Pyrexia [None]
  - Pancytopenia [None]
  - Fatigue [None]
  - Abdominal pain [None]
  - Appendicitis [None]
